FAERS Safety Report 8913956 (Version 1)
Quarter: 2012Q4

REPORT INFORMATION
  Report Type: Spontaneous
  Country: US (occurrence: None)
  Receive Date: 20121114
  Receipt Date: 20121114
  Transmission Date: 20130627
  Serious: Yes (Death)
  Sender: FDA-Public Use
  Company Number: 20120042

PATIENT
  Age: 64 Year
  Sex: Male
  Weight: 90.49 kg

DRUGS (2)
  1. SUBSYS [Suspect]
     Indication: CANCER PAIN
     Route: 060
  2. PERCOSET [Concomitant]

REACTIONS (1)
  - Death [None]
